FAERS Safety Report 7539101-8 (Version None)
Quarter: 2011Q2

REPORT INFORMATION
  Report Type: 
  Country: None (occurrence: None)
  Receive Date: 20110610
  Receipt Date: 20010223
  Transmission Date: 20111010
  Serious: Yes (Death, Other)
  Sender: FDA-Public Use
  Company Number: PHFR2000IE01753

PATIENT
  Sex: Male
  Weight: 127 kg

DRUGS (8)
  1. ASPIRIN [Concomitant]
     Dosage: 300 MG, DAILY
     Route: 048
     Dates: start: 19981001
  2. IPRATROPIUM BROMIDE [Concomitant]
     Dates: start: 19981001
  3. CITALOPRAM HYDROBROMIDE [Concomitant]
     Dosage: 20 MG, DAILY
     Route: 048
     Dates: start: 19980401
  4. BENZTROPINE MESYLATE [Concomitant]
     Dosage: 4 MG, DAILY
     Route: 048
     Dates: start: 19870601
  5. LITHIUM CARBONATE [Concomitant]
     Dosage: 1400 MG, DAILY
     Route: 048
     Dates: start: 19820101
  6. FUROSEMIDE [Concomitant]
     Dosage: 40 MG, DAILY
     Route: 048
     Dates: start: 19981001
  7. ADALAT [Concomitant]
     Dosage: 20 MG, DAILY
     Route: 048
     Dates: start: 20000101
  8. CLOZARIL [Suspect]
     Indication: SCHIZOPHRENIA
     Dosage: 275 MG, DAILY
     Route: 048
     Dates: start: 20000627

REACTIONS (3)
  - CARDIOMEGALY [None]
  - MYOCARDIAL ISCHAEMIA [None]
  - ARTERIOSCLEROSIS CORONARY ARTERY [None]
